FAERS Safety Report 20872763 (Version 5)
Quarter: 2022Q3

REPORT INFORMATION
  Report Type: Report from Study
  Country: AT (occurrence: AT)
  Receive Date: 20220525
  Receipt Date: 20220831
  Transmission Date: 20221026
  Serious: Yes (Other)
  Sender: FDA-Public Use
  Company Number: AT-PFM-2022-04272

PATIENT
  Age: 60 Year
  Sex: Female
  Weight: 74 kg

DRUGS (5)
  1. BRAFTOVI [Suspect]
     Active Substance: ENCORAFENIB
     Indication: Colorectal cancer
     Dosage: 300 MG/DAY
     Route: 048
     Dates: start: 20220307
  2. CETUXIMAB [Suspect]
     Active Substance: CETUXIMAB
     Indication: Colorectal cancer
     Dosage: 500 MG/M2, WEEKLY, FORMULATION- LIQUID
     Route: 042
     Dates: start: 20220307
  3. ASTEC [BUPRENORPHINE] [Concomitant]
     Indication: Prophylaxis
     Dosage: 52.5 UG/H, UNK
     Route: 062
  4. NOVALGIN 500 [CAFFEINE;PARACETAMOL;PROPYPHENAZONE] [Concomitant]
     Indication: Prophylaxis
     Dosage: 20 DROPS, TID (3/DAY)
     Route: 048
  5. PEMBROLIZUMAB [Concomitant]
     Active Substance: PEMBROLIZUMAB
     Indication: Papillary renal cell carcinoma
     Dosage: 200 MG, EVERY 3 WEEKS
     Route: 042
     Dates: start: 20220629

REACTIONS (4)
  - Second primary malignancy [Recovered/Resolved]
  - Malignant melanoma in situ [Recovered/Resolved]
  - Rash [Not Recovered/Not Resolved]
  - Off label use [Unknown]

NARRATIVE: CASE EVENT DATE: 20220407
